FAERS Safety Report 15886041 (Version 1)
Quarter: 2019Q1

REPORT INFORMATION
  Report Type: Spontaneous
  Country: PT (occurrence: PT)
  Receive Date: 20190129
  Receipt Date: 20190129
  Transmission Date: 20190417
  Serious: Yes (Life-Threatening, Hospitalization, Other)
  Sender: FDA-Public Use
  Company Number: PT-MYLANLABS-2019M1007710

PATIENT
  Age: 51 Year
  Sex: Female
  Weight: 72 kg

DRUGS (8)
  1. TOPIRAMATE. [Suspect]
     Active Substance: TOPIRAMATE
     Indication: WEIGHT DECREASED
     Dosage: 70 MILLIGRAM, QD (35 MILLIGRAM, BID)
     Route: 048
     Dates: start: 2017
  2. CHLORDIAZEPOXIDE. [Interacting]
     Active Substance: CHLORDIAZEPOXIDE
     Indication: WEIGHT DECREASED
     Dosage: 20 MILLIGRAM, QD (10MG BID)
     Route: 048
     Dates: start: 2017
  3. METFORMIN [Interacting]
     Active Substance: METFORMIN HYDROCHLORIDE
     Indication: WEIGHT DECREASED
     Dosage: 460 MILLIGRAM, QD (230MG BID)
     Route: 048
     Dates: start: 2017
  4. HOODIA GORDONII [Interacting]
     Active Substance: DIETARY SUPPLEMENT
     Indication: WEIGHT DECREASED
     Dosage: 140 MILLIGRAM, QD (70MG 2ID)
     Route: 048
     Dates: start: 2017
  5. BUPROPION. [Interacting]
     Active Substance: BUPROPION
     Indication: WEIGHT DECREASED
     Dosage: 240 MILLIGRAM, QD (120MG BID)
     Route: 048
     Dates: start: 2017
  6. TRI-GYNERA [Interacting]
     Active Substance: ETHINYL ESTRADIOL\GESTODENE
     Indication: CONTRACEPTION
     Dosage: UNK
     Route: 065
  7. FUROSEMIDE. [Interacting]
     Active Substance: FUROSEMIDE
     Indication: WEIGHT DECREASED
     Dosage: 60 MILLIGRAM, QD (30MG BID)
     Route: 048
     Dates: start: 2017
  8. CASCARA [Interacting]
     Active Substance: RHAMNUS PURSHIANA BARK EXTRACT
     Indication: WEIGHT DECREASED
     Dosage: 120 MILLIGRAM, QD (60MG 2ID)
     Route: 048
     Dates: start: 2017

REACTIONS (3)
  - Cerebral venous thrombosis [Recovering/Resolving]
  - Product use in unapproved indication [Unknown]
  - Drug interaction [Unknown]

NARRATIVE: CASE EVENT DATE: 20180619
